FAERS Safety Report 4814445-9 (Version None)
Quarter: 2005Q4

REPORT INFORMATION
  Report Type: 
  Country: None (occurrence: None)
  Receive Date: 20051028
  Receipt Date: 20050823
  Transmission Date: 20060501
  Serious: No
  Sender: FDA-Public Use
  Company Number: 2005Q01375

PATIENT
  Age: 52 Year
  Sex: Male
  Weight: 53.6 kg

DRUGS (2)
  1. ADVAIR DISKUS 100/50 [Suspect]
     Indication: SEASONAL ALLERGY
     Route: 055
     Dates: start: 20050731
  2. PREVACID [Suspect]
     Dosage: 30MG PER DAY
     Route: 048
     Dates: start: 20050731

REACTIONS (1)
  - HEADACHE [None]
